FAERS Safety Report 4956696-9 (Version None)
Quarter: 2006Q1

REPORT INFORMATION
  Report Type: 
  Country: None (occurrence: None)
  Receive Date: 20060323
  Receipt Date: 20060314
  Transmission Date: 20060701
  Serious: Yes (Other)
  Sender: FDA-Public Use
  Company Number: 223032

PATIENT
  Age: 76 Year
  Sex: Male

DRUGS (3)
  1. RITUXAN [Suspect]
     Indication: NON-HODGKIN'S LYMPHOMA
     Dosage: 600 MG, INTRAVENOUS
     Route: 042
     Dates: start: 20050905, end: 20051011
  2. POLARAMINE [Concomitant]
  3. SOLU-CORTEF [Concomitant]

REACTIONS (1)
  - APLASIA PURE RED CELL [None]
